FAERS Safety Report 25579770 (Version 1)
Quarter: 2025Q3

REPORT INFORMATION
  Report Type: Spontaneous
  Country: US (occurrence: US)
  Receive Date: 20250718
  Receipt Date: 20250718
  Transmission Date: 20251020
  Serious: Yes (Other)
  Sender: PHARMACEUTICAL ASSOC
  Company Number: US-PAIPHARMA-2025-US-034293

PATIENT
  Age: 84 Year
  Sex: Female

DRUGS (2)
  1. RISPERIDONE [Suspect]
     Active Substance: RISPERIDONE
     Indication: Schizophrenia
  2. HALOPERIDOL [Suspect]
     Active Substance: HALOPERIDOL
     Indication: Schizophrenia

REACTIONS (4)
  - Hypothermia [Unknown]
  - Leukopenia [Unknown]
  - Thrombocytopenia [Unknown]
  - Sinus bradycardia [Unknown]
